FAERS Safety Report 8899257 (Version 1)
Quarter: 2012Q4

REPORT INFORMATION
  Report Type: 
  Country: US (occurrence: US)
  Receive Date: 20121109
  Receipt Date: 20121109
  Transmission Date: 20130627
  Serious: Yes (Other)
  Sender: FDA-Public Use
  Company Number: US-BRISTOL-MYERS SQUIBB COMPANY-17099458

PATIENT
  Age: 53 Year
  Sex: Female
  Weight: 69 kg

DRUGS (7)
  1. ORENCIA FOR INJ [Suspect]
     Dosage: 1DF = 125mg/ml
Restarted:July2012
     Route: 058
  2. PREDNISONE [Concomitant]
     Dosage: TAb
  3. CYMBALTA [Concomitant]
     Dosage: Cap
  4. METHOTREXATE TABS [Concomitant]
  5. ZYRTEC [Concomitant]
     Dosage: Zyrtec allgy cap
  6. FOLIC ACID [Concomitant]
     Dosage: tab
  7. BYSTOLIC [Concomitant]
     Dosage: tab

REACTIONS (1)
  - Myocardial infarction [Recovered/Resolved]
